FAERS Safety Report 8535960-0 (Version None)
Quarter: 2012Q3

REPORT INFORMATION
  Report Type: 
  Country: None (occurrence: None)
  Receive Date: 20120725
  Receipt Date: 20120723
  Transmission Date: 20120928
  Serious: Yes (Life-Threatening, Hospitalization, Other)
  Sender: FDA-Public Use
  Company Number: PHHY2012FR063439

PATIENT
  Sex: Male

DRUGS (2)
  1. LASIX [Concomitant]
     Indication: GENERAL PHYSICAL HEALTH DETERIORATION
  2. ZOMETA [Suspect]
     Indication: HYPERCALCAEMIA
     Route: 042
     Dates: start: 20120419, end: 20120430

REACTIONS (7)
  - RENAL FAILURE ACUTE [None]
  - HYPERKALAEMIA [None]
  - MELAENA [None]
  - PANCREATIC CARCINOMA [None]
  - RENAL TUBULAR NECROSIS [None]
  - DEHYDRATION [None]
  - FALL [None]
